FAERS Safety Report 4366335-6 (Version None)
Quarter: 2004Q2

REPORT INFORMATION
  Report Type: 
  Country: None (occurrence: None)
  Receive Date: 20040527
  Receipt Date: 20030915
  Transmission Date: 20050107
  Serious: No
  Sender: FDA-Public Use
  Company Number: 2003-80-3076

PATIENT
  Sex: Male

DRUGS (3)
  1. ALBUTEROL [Suspect]
     Indication: ILL-DEFINED DISORDER
     Route: 055
  2. SEREVENT [Suspect]
     Indication: ILL-DEFINED DISORDER
     Route: 055
  3. FORADIL [Concomitant]
     Route: 065

REACTIONS (2)
  - FEELING ABNORMAL [None]
  - FEELING JITTERY [None]
